FAERS Safety Report 4638982-5 (Version None)
Quarter: 2005Q2

REPORT INFORMATION
  Report Type: 
  Country: None (occurrence: None)
  Receive Date: 20050419
  Receipt Date: 20050408
  Transmission Date: 20051028
  Serious: Yes (Death)
  Sender: FDA-Public Use
  Company Number: US-MERCK-0504USA02001

PATIENT
  Sex: Female

DRUGS (2)
  1. VIOXX [Suspect]
     Indication: ARTHRITIS
     Route: 048
     Dates: end: 20021201
  2. VIOXX [Suspect]
     Indication: BACK PAIN
     Route: 048
     Dates: end: 20021201

REACTIONS (2)
  - HAEMORRHAGE INTRACRANIAL [None]
  - HYPERTENSION [None]
